FAERS Safety Report 4570242-3 (Version None)
Quarter: 2005Q1

REPORT INFORMATION
  Report Type: 
  Country: None (occurrence: None)
  Receive Date: 20050127
  Receipt Date: 20050127
  Transmission Date: 20050727
  Serious: Yes (Life-Threatening, Hospitalization, Disabling)
  Sender: FDA-Public Use
  Company Number: None

PATIENT
  Age: 54 Year
  Sex: Female
  Weight: 87.9978 kg

DRUGS (2)
  1. CELEBREX [Suspect]
     Indication: ASEPTIC NECROSIS BONE
     Dosage: BID   PO
     Route: 048
     Dates: start: 19990101, end: 20010301
  2. BEXTRA [Suspect]
     Indication: ASEPTIC NECROSIS BONE
     Dosage: BID    PO
     Route: 048
     Dates: start: 20010301, end: 20050102

REACTIONS (3)
  - CHEST PAIN [None]
  - DYSPNOEA [None]
  - PULMONARY EMBOLISM [None]
